FAERS Safety Report 17276594 (Version 1)
Quarter: 2020Q1

REPORT INFORMATION
  Report Type: Spontaneous
  Country: US (occurrence: US)
  Receive Date: 20200115
  Receipt Date: 20200115
  Transmission Date: 20200409
  Serious: Yes (Disabling)
  Sender: FDA-Public Use
  Company Number: None

PATIENT
  Age: 37 Year
  Sex: Female
  Weight: 69.75 kg

DRUGS (1)
  1. BOTOX [Suspect]
     Active Substance: ONABOTULINUMTOXINA
     Indication: SKIN COSMETIC PROCEDURE
     Dosage: ?          QUANTITY:1 INJECTION(S);?
     Route: 058
     Dates: start: 20200110, end: 20200110

REACTIONS (11)
  - Anxiety [None]
  - Tinnitus [None]
  - Panic reaction [None]
  - Nausea [None]
  - Dyspnoea [None]
  - Diarrhoea [None]
  - Chills [None]
  - Feeding disorder [None]
  - Product complaint [None]
  - Hypoaesthesia [None]
  - Sleep disorder [None]

NARRATIVE: CASE EVENT DATE: 20200110
